FAERS Safety Report 7667959-0 (Version None)
Quarter: 2011Q3

REPORT INFORMATION
  Report Type: 
  Country: None (occurrence: None)
  Receive Date: 20110808
  Receipt Date: 20110729
  Transmission Date: 20111222
  Serious: Yes (Hospitalization, Other)
  Sender: FDA-Public Use
  Company Number: US-BIOGENIDEC-2011BI022389

PATIENT
  Age: 27 Year
  Sex: Female

DRUGS (2)
  1. AVONEX [Suspect]
     Indication: MULTIPLE SCLEROSIS
     Route: 030
     Dates: start: 20100526
  2. AVONEX [Suspect]
     Route: 030
     Dates: start: 20090421

REACTIONS (11)
  - OVARIAN CYST [None]
  - INCISION SITE COMPLICATION [None]
  - OVARIAN CANCER [None]
  - INCISION SITE HAEMORRHAGE [None]
  - BLOOD GLUCOSE INCREASED [None]
  - HERNIA [None]
  - CERVIX CARCINOMA [None]
  - STAPHYLOCOCCAL INFECTION [None]
  - DERMATITIS CONTACT [None]
  - WOUND INFECTION STAPHYLOCOCCAL [None]
  - INCISION SITE PRURITUS [None]
